FAERS Safety Report 20590135 (Version 2)
Quarter: 2022Q2

REPORT INFORMATION
  Report Type: Spontaneous
  Country: US (occurrence: US)
  Receive Date: 20220314
  Receipt Date: 20220406
  Transmission Date: 20220721
  Serious: No
  Sender: FDA-Public Use
  Company Number: US-AMGEN-USASP2022037133

PATIENT
  Age: 73 Year
  Sex: Male
  Weight: 113.83 kg

DRUGS (1)
  1. REPATHA [Suspect]
     Active Substance: EVOLOCUMAB
     Indication: Blood triglycerides abnormal
     Dosage: 140 MILLIGRAM, Q2WK
     Route: 065
     Dates: start: 20171010, end: 20220321

REACTIONS (4)
  - Drug dose omission by device [Unknown]
  - Device difficult to use [Unknown]
  - Wrong technique in device usage process [Unknown]
  - Injury associated with device [Unknown]

NARRATIVE: CASE EVENT DATE: 20220228
